FAERS Safety Report 11806347 (Version 1)
Quarter: 2015Q4

REPORT INFORMATION
  Report Type: Spontaneous
  Country: CO (occurrence: CO)
  Receive Date: 20151207
  Receipt Date: 20151207
  Transmission Date: 20160305
  Serious: Yes (Life-Threatening, Other)
  Sender: FDA-Public Use
  Company Number: CO-VIIV HEALTHCARE LIMITED-CO2015GSK172499

PATIENT
  Age: 28 Year
  Sex: Male

DRUGS (2)
  1. NEVIRAPINE. [Suspect]
     Active Substance: NEVIRAPINE
     Indication: HIV INFECTION
     Dosage: UNK
     Route: 048
     Dates: start: 201511, end: 20151125
  2. KIVEXA [Suspect]
     Active Substance: ABACAVIR SULFATE\LAMIVUDINE
     Indication: HIV INFECTION
     Dosage: 1 DF, QD, TABLET
     Route: 048
     Dates: start: 201511, end: 20151125

REACTIONS (7)
  - Diarrhoea [Unknown]
  - Rash maculo-papular [Recovered/Resolved]
  - Discomfort [Unknown]
  - Myalgia [Unknown]
  - Headache [Unknown]
  - Jaundice [Unknown]
  - Drug hypersensitivity [Unknown]
